FAERS Safety Report 5186430-1 (Version None)
Quarter: 2006Q4

REPORT INFORMATION
  Report Type: 
  Country: None (occurrence: None)
  Receive Date: 20061220
  Receipt Date: 20061211
  Transmission Date: 20070319
  Serious: No
  Sender: FDA-Public Use
  Company Number: US-ELI_LILLY_AND_COMPANY-US200612002513

PATIENT
  Age: 43 Year
  Sex: Female

DRUGS (4)
  1. CYMBALTA [Suspect]
     Indication: FIBROMYALGIA
     Dosage: 90 MG, UNK
     Dates: start: 20050801, end: 20061211
  2. ALTACE [Concomitant]
     Dosage: 10 MG, UNK
  3. BUSPAR                                  /AUS/ [Concomitant]
     Dosage: 15 MG, UNK
  4. VISTARIL [Concomitant]
     Dosage: 50 MG, UNK

REACTIONS (9)
  - ALANINE AMINOTRANSFERASE INCREASED [None]
  - ASPARTATE AMINOTRANSFERASE INCREASED [None]
  - BLOOD GLUCOSE INCREASED [None]
  - CONFUSIONAL STATE [None]
  - CYTOMEGALOVIRUS TEST POSITIVE [None]
  - DIARRHOEA [None]
  - HEADACHE [None]
  - MUSCULOSKELETAL STIFFNESS [None]
  - NAUSEA [None]
